FAERS Safety Report 10086858 (Version 2)
Quarter: 2014Q2

REPORT INFORMATION
  Report Type: Report from Study
  Country: CM (occurrence: CM)
  Receive Date: 20140418
  Receipt Date: 20140515
  Transmission Date: 20141212
  Serious: Yes (Death, Other)
  Sender: FDA-Public Use
  Company Number: CM-ABBVIE-14P-027-1227571-00

PATIENT
  Age: 32 Year
  Sex: Female

DRUGS (8)
  1. RITONAVIR [Suspect]
     Indication: HIV INFECTION
     Route: 048
     Dates: start: 20120911, end: 20130527
  2. RITONAVIR [Suspect]
     Route: 048
     Dates: start: 20130528, end: 20131027
  3. BARACLUDE [Concomitant]
     Indication: HIV INFECTION
     Route: 048
     Dates: start: 20130528, end: 20131027
  4. TENOFOVIR DISOPROXIL FUMARATE [Concomitant]
     Indication: HIV INFECTION
     Route: 048
     Dates: start: 20120911, end: 20131027
  5. PREZISTA [Concomitant]
     Indication: HIV INFECTION
     Route: 048
     Dates: start: 20120911, end: 20130527
  6. PREZISTA [Concomitant]
     Route: 048
     Dates: start: 20130528, end: 20131027
  7. EPIVIR [Concomitant]
     Indication: HIV INFECTION
     Route: 048
     Dates: start: 20131022, end: 20131027
  8. EMTRICITABINE [Concomitant]
     Indication: HIV INFECTION
     Route: 048
     Dates: start: 20120911, end: 20121021

REACTIONS (2)
  - Haemorrhage [Fatal]
  - Stillbirth [Unknown]
